FAERS Safety Report 9791606 (Version 3)
Quarter: 2014Q1

REPORT INFORMATION
  Report Type: Report from Study
  Country: CA (occurrence: CA)
  Receive Date: 20140102
  Receipt Date: 20140304
  Transmission Date: 20141002
  Serious: Yes (Other)
  Sender: FDA-Public Use
  Company Number: CA-ROCHE-1283264

PATIENT
  Sex: Male

DRUGS (4)
  1. RITUXAN [Suspect]
     Indication: RHEUMATOID ARTHRITIS
     Dosage: DAY 1, 15 (LAST DOSE WAS ON 27/AUG/2010)
     Route: 042
     Dates: start: 20060506
  2. RITUXAN [Suspect]
     Dosage: DAY 1, 15 (LAST DOSE WAS ON 27/AUG/2010)
     Route: 042
     Dates: start: 20100820
  3. MOTRIN [Concomitant]
     Indication: MIGRAINE
     Dosage: AS REQUIRED
     Route: 065
  4. ADVIL [Concomitant]
     Dosage: AS REQUIRED
     Route: 065

REACTIONS (4)
  - Lymphoproliferative disorder [Unknown]
  - Rheumatoid arthritis [Not Recovered/Not Resolved]
  - Malaise [Not Recovered/Not Resolved]
  - Platelet count decreased [Not Recovered/Not Resolved]
